FAERS Safety Report 5369279-6 (Version None)
Quarter: 2007Q2

REPORT INFORMATION
  Report Type: 
  Country: None (occurrence: None)
  Receive Date: 20070625
  Receipt Date: 20070306
  Transmission Date: 20071010
  Serious: No
  Sender: FDA-Public Use
  Company Number: US-ASTRAZENECA-2007UW04205

PATIENT
  Age: 79 Year
  Sex: Female
  Weight: 30.1 kg

DRUGS (4)
  1. CRESTOR [Suspect]
     Indication: BLOOD CHOLESTEROL INCREASED
     Route: 048
  2. TOPROL-XL [Concomitant]
     Route: 048
  3. BENICAR [Concomitant]
  4. CARTIA XT [Concomitant]

REACTIONS (5)
  - ARTHRITIS [None]
  - JOINT RANGE OF MOTION DECREASED [None]
  - NIGHT SWEATS [None]
  - PAIN IN EXTREMITY [None]
  - TENDON INJURY [None]
